FAERS Safety Report 26077260 (Version 2)
Quarter: 2025Q4

REPORT INFORMATION
  Report Type: Report from Study
  Country: US (occurrence: US)
  Receive Date: 20251121
  Receipt Date: 20251225
  Transmission Date: 20260117
  Serious: Yes (Hospitalization)
  Sender: ELI LILLY AND COMPANY
  Company Number: US-ELI_LILLY_AND_COMPANY-US202504009119

PATIENT
  Age: 75 Year
  Sex: Female

DRUGS (3)
  1. VERZENIO [Interacting]
     Active Substance: ABEMACICLIB
     Indication: Neoplasm malignant
     Dosage: 150 MG, BID
     Route: 065
     Dates: start: 20250124
  2. VERZENIO [Interacting]
     Active Substance: ABEMACICLIB
     Dosage: 150 MG, BID
     Route: 065
  3. VERZENIO [Interacting]
     Active Substance: ABEMACICLIB
     Dosage: 150 MG, BID
     Route: 065

REACTIONS (7)
  - Atrial fibrillation [Recovered/Resolved]
  - Drug interaction [Unknown]
  - Urinary tract infection [Recovered/Resolved]
  - Arthralgia [Unknown]
  - Off label use [Unknown]
  - Fatigue [Unknown]
  - Diarrhoea [Recovered/Resolved]
